FAERS Safety Report 10410203 (Version 1)
Quarter: 2014Q3

REPORT INFORMATION
  Report Type: Spontaneous
  Country: US (occurrence: None)
  Receive Date: 20140825
  Receipt Date: 20140825
  Transmission Date: 20150326
  Serious: No
  Sender: FDA-Public Use
  Company Number: None

PATIENT
  Age: 10 Year
  Sex: Male
  Weight: 40.82 kg

DRUGS (2)
  1. ATIVAN [Suspect]
     Active Substance: LORAZEPAM
     Indication: PANIC ATTACK
     Dosage: 1 PILL, AS NEEDED, TAKEN BY MOUTH
     Route: 048
     Dates: start: 20140630, end: 20140821
  2. ATIVAN [Suspect]
     Active Substance: LORAZEPAM
     Indication: ANXIETY
     Dosage: 1 PILL, AS NEEDED, TAKEN BY MOUTH
     Route: 048
     Dates: start: 20140630, end: 20140821

REACTIONS (5)
  - Depression [None]
  - Vomiting [None]
  - Hallucination [None]
  - Suicidal ideation [None]
  - Dizziness [None]

NARRATIVE: CASE EVENT DATE: 20140821
